FAERS Safety Report 5765189-0 (Version None)
Quarter: 2008Q2

REPORT INFORMATION
  Report Type: 
  Country: None (occurrence: None)
  Receive Date: 20080610
  Receipt Date: 20080610
  Transmission Date: 20081010
  Serious: Yes (Other)
  Sender: FDA-Public Use
  Company Number: None

PATIENT
  Age: 43 Year
  Sex: Female
  Weight: 86.1834 kg

DRUGS (4)
  1. DURAGESIC-25 [Suspect]
     Indication: BACK PAIN
     Dosage: 1 PATCH  EVERY 72 HRS.  TRANSDERMAL
     Route: 062
     Dates: start: 20080410, end: 20080604
  2. MOTRIN [Concomitant]
  3. PERCOCET [Concomitant]
  4. ACCUPUNCTURE [Concomitant]

REACTIONS (2)
  - APPLICATION SITE BURN [None]
  - SKIN EXFOLIATION [None]
